FAERS Safety Report 13025180 (Version 2)
Quarter: 2016Q4

REPORT INFORMATION
  Report Type: Spontaneous
  Country: JP (occurrence: JP)
  Receive Date: 20161214
  Receipt Date: 20161228
  Transmission Date: 20170207
  Serious: Yes (Other)
  Sender: FDA-Public Use
  Company Number: JP-UCBSA-2016047099

PATIENT

DRUGS (1)
  1. NEUPRO [Suspect]
     Active Substance: ROTIGOTINE
     Indication: PARKINSON^S DISEASE
     Dosage: 2 MG, ONCE DAILY (QD), STRENGTH : 2MG/24 HRS
     Route: 062
     Dates: start: 20161128, end: 20161202

REACTIONS (1)
  - Blood bilirubin increased [Unknown]

NARRATIVE: CASE EVENT DATE: 20161202
